FAERS Safety Report 15868181 (Version 1)
Quarter: 2019Q1

REPORT INFORMATION
  Report Type: Spontaneous
  Country: CA (occurrence: CA)
  Receive Date: 20190125
  Receipt Date: 20190125
  Transmission Date: 20190417
  Serious: No
  Sender: FDA-Public Use
  Company Number: None

PATIENT
  Age: 45 Year
  Sex: Female
  Weight: 63 kg

DRUGS (2)
  1. BUCKLEY^S COMPLETE COUGH, COLD AND FLU [Suspect]
     Active Substance: ACETAMINOPHEN\MENTHOL
     Indication: OROPHARYNGEAL PAIN
     Dosage: ?          QUANTITY:1 TEASPOON(S);?
     Route: 048
     Dates: start: 20190118, end: 20190121
  2. BUCKLEY^S COMPLETE COUGH, COLD AND FLU [Suspect]
     Active Substance: ACETAMINOPHEN\MENTHOL
     Indication: PULMONARY CONGESTION
     Dosage: ?          QUANTITY:1 TEASPOON(S);?
     Route: 048
     Dates: start: 20190118, end: 20190121

REACTIONS (3)
  - Abdominal rigidity [None]
  - Abdominal pain [None]
  - Suspected product contamination [None]

NARRATIVE: CASE EVENT DATE: 20190120
